FAERS Safety Report 9294535 (Version 3)
Quarter: 2013Q2

REPORT INFORMATION
  Report Type: Spontaneous
  Country: US (occurrence: None)
  Receive Date: 20130514
  Receipt Date: 20130620
  Transmission Date: 20140414
  Serious: Yes (Hospitalization, Other)
  Sender: FDA-Public Use
  Company Number: ADR-2013-00796

PATIENT
  Age: 54 Year
  Sex: Female

DRUGS (3)
  1. LIORESAL INTRATHECAL (BACLOFEN INJECTION) 2000 MCG/ML [Suspect]
     Indication: MUSCLE SPASTICITY
     Dosage: 594. MCG/DAY
  2. LIORESAL INTRATHECAL (BACLOFEN INJECTION) 2000 MCG/ML [Suspect]
     Indication: CEREBROVASCULAR ACCIDENT
     Dosage: 594. MCG/DAY
  3. PLAVIX [Concomitant]

REACTIONS (5)
  - Pain [None]
  - Hyperhidrosis [None]
  - Chest pain [None]
  - Coronary artery occlusion [None]
  - Myocardial infarction [None]
